FAERS Safety Report 15560675 (Version 1)
Quarter: 2018Q4

REPORT INFORMATION
  Report Type: Spontaneous
  Country: US (occurrence: US)
  Receive Date: 20181029
  Receipt Date: 20181029
  Transmission Date: 20190205
  Serious: Yes (Hospitalization)
  Sender: FDA-Public Use
  Company Number: US-PFIZER INC-2018426074

PATIENT
  Age: 76 Year
  Sex: Male
  Weight: 88.44 kg

DRUGS (2)
  1. CHANTIX [Suspect]
     Active Substance: VARENICLINE TARTRATE
     Indication: DYSPNOEA
  2. CHANTIX [Suspect]
     Active Substance: VARENICLINE TARTRATE
     Indication: SMOKING CESSATION THERAPY
     Dosage: 1 MG, 2X/DAY
     Route: 048
     Dates: start: 20180703

REACTIONS (7)
  - Gait disturbance [Unknown]
  - Fall [Unknown]
  - Colon cancer stage III [Recovered/Resolved]
  - Dizziness [Unknown]
  - Lethargy [Recovering/Resolving]
  - Lung disorder [Unknown]
  - Anxiety [Unknown]

NARRATIVE: CASE EVENT DATE: 201809
